FAERS Safety Report 18758838 (Version 1)
Quarter: 2021Q1

REPORT INFORMATION
  Report Type: Spontaneous
  Country: ES (occurrence: ES)
  Receive Date: 20210120
  Receipt Date: 20210120
  Transmission Date: 20210419
  Serious: Yes (Death, Other)
  Sender: FDA-Public Use
  Company Number: ES-SUN PHARMACEUTICAL INDUSTRIES LTD-2021RR-275724

PATIENT
  Age: 54 Year
  Sex: Male

DRUGS (5)
  1. TOCILIZUMAB (8289A) [Suspect]
     Active Substance: TOCILIZUMAB
     Indication: COVID-19
     Dosage: 600 MILLIGRAM, IN TOTAL
     Route: 042
     Dates: start: 20200329, end: 20200329
  2. CLARITHROMYCIN. [Suspect]
     Active Substance: CLARITHROMYCIN
     Indication: PRODUCT USED FOR UNKNOWN INDICATION
     Dosage: 500 MILLIGRAM, 1DOSE/12HOUR
     Route: 065
     Dates: start: 20200329, end: 20200406
  3. HIDROXICLOROQUINA (2143A) [Suspect]
     Active Substance: HYDROXYCHLOROQUINE
     Indication: COVID-19
     Dosage: UNK
     Route: 048
     Dates: start: 20200329, end: 20200402
  4. CEFTRIAXONA (501A) [Suspect]
     Active Substance: CEFTRIAXONE
     Indication: PRODUCT USED FOR UNKNOWN INDICATION
     Dosage: UNK
     Route: 065
     Dates: start: 20200329, end: 20200409
  5. KALETRA [Suspect]
     Active Substance: LOPINAVIR\RITONAVIR
     Indication: COVID-19
     Dosage: UNK
     Route: 065
     Dates: start: 20200329, end: 20200409

REACTIONS (1)
  - Long QT syndrome [Unknown]

NARRATIVE: CASE EVENT DATE: 20200404
